FAERS Safety Report 7789274-7 (Version None)
Quarter: 2011Q3

REPORT INFORMATION
  Report Type: 
  Country: None (occurrence: None)
  Receive Date: 20110930
  Receipt Date: 20110920
  Transmission Date: 20111222
  Serious: Yes (Hospitalization)
  Sender: FDA-Public Use
  Company Number: JP-EISAI INC-E3810-04956-SPO-JP

PATIENT
  Age: 49 Year
  Sex: Female

DRUGS (1)
  1. RABEPRAZOLE SODIUM [Suspect]
     Route: 048
     Dates: start: 20090801, end: 20100401

REACTIONS (1)
  - LIVER DISORDER [None]
